FAERS Safety Report 9865167 (Version 1)
Quarter: 2014Q1

REPORT INFORMATION
  Report Type: Spontaneous
  Country: DK (occurrence: DK)
  Receive Date: 20140203
  Receipt Date: 20140203
  Transmission Date: 20141002
  Serious: Yes (Hospitalization)
  Sender: FDA-Public Use
  Company Number: PHHY2014DK009719

PATIENT
  Age: 43 Year
  Sex: Female

DRUGS (4)
  1. GESTONETTE [Suspect]
     Indication: CONTRACEPTION
     Dosage: UNK
     Dates: start: 20070615, end: 20130618
  2. REDUCTIL [Suspect]
     Indication: OVERWEIGHT
     Dates: end: 2010
  3. PANTOPRAZOL [Concomitant]
  4. NSAID^S [Concomitant]

REACTIONS (7)
  - Back pain [Recovered/Resolved]
  - Oesophageal pain [Recovered/Resolved]
  - Acute myocardial infarction [Recovered/Resolved]
  - Chest pain [Recovered/Resolved]
  - Abdominal pain [Recovered/Resolved]
  - Hypoaesthesia [Recovered/Resolved]
  - Dyspnoea [Recovered/Resolved]
